APPROVED DRUG PRODUCT: TALC
Active Ingredient: TALC
Strength: 5GM/BOT
Dosage Form/Route: POWDER;INTRAPLEURAL
Application: N021388 | Product #001
Applicant: SCIARRA LABORATORIES INC
Approved: Dec 15, 2003 | RLD: Yes | RS: Yes | Type: RX